FAERS Safety Report 6852152-1 (Version None)
Quarter: 2010Q3

REPORT INFORMATION
  Report Type: 
  Country: None (occurrence: None)
  Receive Date: 20100717
  Receipt Date: 20071107
  Transmission Date: 20110219
  Serious: No
  Sender: FDA-Public Use
  Company Number: US-PFIZER INC-2007095172

PATIENT
  Sex: Male
  Weight: 75 kg

DRUGS (3)
  1. CHANTIX [Suspect]
     Indication: SMOKING CESSATION THERAPY
     Dates: start: 20071001
  2. FISH OIL [Concomitant]
  3. MULTI-VITAMINS VITAFIT [Concomitant]

REACTIONS (7)
  - ANXIETY [None]
  - CHEST DISCOMFORT [None]
  - HEADACHE [None]
  - MIDDLE INSOMNIA [None]
  - OEDEMA PERIPHERAL [None]
  - PALPITATIONS [None]
  - RESPIRATORY DISORDER [None]
